FAERS Safety Report 5903626-9 (Version None)
Quarter: 2008Q3

REPORT INFORMATION
  Report Type: 
  Country: None (occurrence: None)
  Receive Date: 20080919
  Receipt Date: 20080827
  Transmission Date: 20090109
  Serious: No
  Sender: FDA-Public Use
  Company Number: US-WYE-H05750708

PATIENT

DRUGS (3)
  1. PRISTIQ [Suspect]
     Indication: DEPRESSION
  2. ASPIRIN [Suspect]
     Dosage: ^BABY ASA^ (FREQUENCY UNSPECIFIED)
     Dates: start: 20080101
  3. PLAVIX [Suspect]
     Dates: start: 20080101

REACTIONS (1)
  - ECCHYMOSIS [None]
